FAERS Safety Report 16792384 (Version 2)
Quarter: 2019Q3

REPORT INFORMATION
  Report Type: Report from Study
  Country: CA (occurrence: CA)
  Receive Date: 20190910
  Receipt Date: 20190925
  Transmission Date: 20191005
  Serious: Yes (Hospitalization)
  Sender: FDA-Public Use
  Company Number: CA-GLAXOSMITHKLINE-CA2019AMR124565

PATIENT
  Sex: Female

DRUGS (3)
  1. PREDNISONE. [Suspect]
     Active Substance: PREDNISONE
     Indication: PRODUCT USED FOR UNKNOWN INDICATION
     Dosage: UNK
  2. SALBUTAMOL SULPHATE [Suspect]
     Active Substance: ALBUTEROL SULFATE
     Indication: PRODUCT USED FOR UNKNOWN INDICATION
     Dosage: UNK
  3. NUCALA [Suspect]
     Active Substance: MEPOLIZUMAB
     Indication: ASTHMA
     Dosage: 100 MG, Z(MONTHLY)
     Route: 042
     Dates: start: 20190729

REACTIONS (13)
  - Asthma [Unknown]
  - Sleep disorder due to a general medical condition [Unknown]
  - Myalgia [Unknown]
  - Respiratory rate increased [Unknown]
  - Loss of personal independence in daily activities [Unknown]
  - Left ventricular dilatation [Unknown]
  - Heart rate increased [Unknown]
  - Oxygen saturation [Unknown]
  - Wheezing [Unknown]
  - Blood count abnormal [Unknown]
  - Dyspnoea [Unknown]
  - Headache [Unknown]
  - Therapeutic product effect incomplete [Unknown]
